FAERS Safety Report 7069761-X (Version None)
Quarter: 2010Q4

REPORT INFORMATION
  Report Type: 
  Country: None (occurrence: None)
  Receive Date: 20101028
  Receipt Date: 20100602
  Transmission Date: 20110411
  Serious: No
  Sender: FDA-Public Use
  Company Number: US-WYE-H15548210

PATIENT
  Sex: Female
  Weight: 76.27 kg

DRUGS (3)
  1. EFFEXOR [Suspect]
     Indication: THYROID DISORDER
     Dosage: ^SMALL OR PEDIATRIC DOSE^
     Route: 065
     Dates: start: 19950101
  2. VENLAFAXINE HYDROCHLORIDE [Suspect]
     Dosage: UNKNOWN
     Route: 065
  3. LEVOTHYROXINE SODIUM [Concomitant]

REACTIONS (6)
  - DIZZINESS [None]
  - DRUG INEFFECTIVE [None]
  - DRUG WITHDRAWAL SYNDROME [None]
  - FEELING ABNORMAL [None]
  - NAUSEA [None]
  - NONSPECIFIC REACTION [None]
